FAERS Safety Report 7608993-6 (Version None)
Quarter: 2011Q3

REPORT INFORMATION
  Report Type: 
  Country: None (occurrence: None)
  Receive Date: 20110714
  Receipt Date: 20110706
  Transmission Date: 20111222
  Serious: Yes (Other)
  Sender: FDA-Public Use
  Company Number: GB-SHIRE-ALL1-2011-02126

PATIENT
  Sex: Male

DRUGS (2)
  1. TACROLIMUS [Suspect]
     Indication: COLITIS ULCERATIVE
     Dosage: UNK, 1X/DAY:QD
     Route: 048
  2. MESALAMINE [Suspect]
     Indication: PRODUCT USED FOR UNKNOWN INDICATION
     Dosage: UNK, UNKNOWN
     Route: 065

REACTIONS (2)
  - DEEP VEIN THROMBOSIS [None]
  - THROMBOPHLEBITIS [None]
